FAERS Safety Report 14334343 (Version 1)
Quarter: 2017Q4

REPORT INFORMATION
  Report Type: Spontaneous
  Country: JP (occurrence: JP)
  Receive Date: 20171228
  Receipt Date: 20171228
  Transmission Date: 20180321
  Serious: Yes (Life-Threatening)
  Sender: FDA-Public Use
  Company Number: JP-JNJFOC-20171233879

PATIENT
  Age: 78 Year
  Sex: Male

DRUGS (1)
  1. DARZALEX [Suspect]
     Active Substance: DARATUMUMAB
     Indication: PLASMA CELL MYELOMA
     Route: 042
     Dates: start: 20171220, end: 20171220

REACTIONS (2)
  - Infusion related reaction [Not Recovered/Not Resolved]
  - Cardiac failure acute [Not Recovered/Not Resolved]

NARRATIVE: CASE EVENT DATE: 20171220
